FAERS Safety Report 8153583-2 (Version None)
Quarter: 2012Q1

REPORT INFORMATION
  Report Type: 
  Country: None (occurrence: None)
  Receive Date: 20120215
  Receipt Date: 20120201
  Transmission Date: 20120608
  Serious: Yes (Other)
  Sender: FDA-Public Use
  Company Number: 2012P1003843

PATIENT
  Age: 70 Year
  Sex: Female
  Weight: 51.7101 kg

DRUGS (7)
  1. AMITIZA [Concomitant]
  2. PROCHLORPER SUPPOSITORIES [Concomitant]
  3. FENTANYL-100 [Suspect]
     Indication: BACK PAIN
     Dosage: TDER; 1 PATCH; Q72H;TDER
     Route: 062
     Dates: start: 20100101, end: 20100101
  4. FENTANYL-100 [Suspect]
     Indication: BACK PAIN
     Dosage: TDER; 1 PATCH; Q72H;TDER
     Route: 062
     Dates: start: 20120123, end: 20120201
  5. MORPHINE [Concomitant]
  6. ZOFRAN [Concomitant]
  7. METOCLOPRAMIDE [Concomitant]

REACTIONS (8)
  - NAUSEA [None]
  - DRUG EFFECT DECREASED [None]
  - DRUG WITHDRAWAL SYNDROME [None]
  - HYPOPNOEA [None]
  - BREAST CANCER RECURRENT [None]
  - TREMOR [None]
  - SOMNOLENCE [None]
  - ABDOMINAL PAIN UPPER [None]
